FAERS Safety Report 15636819 (Version 1)
Quarter: 2018Q4

REPORT INFORMATION
  Report Type: Spontaneous
  Country: US (occurrence: US)
  Receive Date: 20181120
  Receipt Date: 20181120
  Transmission Date: 20190205
  Serious: No
  Sender: FDA-Public Use
  Company Number: US-GLAXOSMITHKLINE-US2018203829

PATIENT
  Age: 67 Year
  Sex: Male

DRUGS (2)
  1. PREVACID 24 HR [Suspect]
     Active Substance: LANSOPRAZOLE
     Indication: BARRETT^S OESOPHAGUS
     Dosage: 2 DF, QD
     Route: 048
     Dates: start: 2016
  2. PREVACID [Suspect]
     Active Substance: LANSOPRAZOLE
     Indication: BARRETT^S OESOPHAGUS
     Dosage: UNK
     Dates: start: 2006, end: 2016

REACTIONS (6)
  - Product use in unapproved indication [Unknown]
  - Product use issue [Unknown]
  - Malaise [Unknown]
  - Headache [Unknown]
  - Hypertension [Unknown]
  - Off label use [Unknown]

NARRATIVE: CASE EVENT DATE: 2018
